FAERS Safety Report 11424229 (Version 1)
Quarter: 2015Q3

REPORT INFORMATION
  Report Type: Spontaneous
  Country: None (occurrence: DK)
  Receive Date: 20150827
  Receipt Date: 20150827
  Transmission Date: 20151125
  Serious: Yes (Other)
  Sender: FDA-Public Use
  Company Number: DK-MEDAC PHARMA, INC.-1041432

PATIENT

DRUGS (1)
  1. METEX PEN (METHOTREXATE INJECTION) [Suspect]
     Active Substance: METHOTREXATE

REACTIONS (5)
  - Injection site necrosis [Unknown]
  - Photosensitivity reaction [Unknown]
  - Injection site ulcer [Unknown]
  - Injection site discolouration [Unknown]
  - Papule [None]
